FAERS Safety Report 7959591-6 (Version None)
Quarter: 2011Q4

REPORT INFORMATION
  Report Type: 
  Country: None (occurrence: None)
  Receive Date: 20111206
  Receipt Date: 20111130
  Transmission Date: 20120403
  Serious: Yes (Other)
  Sender: FDA-Public Use
  Company Number: JP-BRISTOL-MYERS SQUIBB COMPANY-16256323

PATIENT
  Age: 7 Decade
  Sex: Male

DRUGS (4)
  1. OXALIPLATIN [Suspect]
     Dosage: DRUG DISCONTINUED
     Route: 041
  2. LEUCOVORIN CALCIUM [Suspect]
     Route: 041
  3. ERBITUX [Suspect]
     Dosage: 1 D.F:5MG/ML
     Route: 042
     Dates: start: 20110630
  4. FLUOROURACIL [Suspect]
     Route: 041

REACTIONS (1)
  - ANGINA PECTORIS [None]
